FAERS Safety Report 12934283 (Version 1)
Quarter: 2016Q4

REPORT INFORMATION
  Report Type: Spontaneous
  Country: US (occurrence: US)
  Receive Date: 20161111
  Receipt Date: 20161111
  Transmission Date: 20170207
  Serious: Yes (Other)
  Sender: FDA-Public Use
  Company Number: US-SA-2016SA202328

PATIENT
  Age: 61 Year
  Sex: Female

DRUGS (12)
  1. BACLOFEN. [Concomitant]
     Active Substance: BACLOFEN
  2. PANCRELIPASE. [Concomitant]
     Active Substance: PANCRELIPASE
  3. CARVEDILOL. [Concomitant]
     Active Substance: CARVEDILOL
  4. CYPROHEPTADINE. [Concomitant]
     Active Substance: CYPROHEPTADINE
  5. PROTONIX [Concomitant]
     Active Substance: PANTOPRAZOLE SODIUM
  6. LISINOPRIL. [Concomitant]
     Active Substance: LISINOPRIL
  7. POTASSIUM [Concomitant]
     Active Substance: POTASSIUM
  8. BUPROPION. [Concomitant]
     Active Substance: BUPROPION
  9. MORPHINE [Concomitant]
     Active Substance: MORPHINE
  10. AUBAGIO [Suspect]
     Active Substance: TERIFLUNOMIDE
     Indication: MULTIPLE SCLEROSIS
     Route: 048
     Dates: start: 20150923
  11. XANAX [Concomitant]
     Active Substance: ALPRAZOLAM
  12. LOPID [Concomitant]
     Active Substance: GEMFIBROZIL

REACTIONS (2)
  - Pneumonia [Unknown]
  - Malaise [Unknown]

NARRATIVE: CASE EVENT DATE: 20161102
